FAERS Safety Report 5449138-0 (Version None)
Quarter: 2007Q3

REPORT INFORMATION
  Report Type: 
  Country: None (occurrence: None)
  Receive Date: 20070911
  Receipt Date: 20070905
  Transmission Date: 20080115
  Serious: Yes (Death)
  Sender: FDA-Public Use
  Company Number: DE-ROXANE LABORATORIES, INC-2007-DE-04692GD

PATIENT
  Age: 22 Year
  Sex: Female

DRUGS (2)
  1. DEXTROMETHORPHAN HYDROBROMIDE [Suspect]
  2. COCAINE HYDROCHLORIDE [Suspect]

REACTIONS (7)
  - CONVULSION [None]
  - DRUG INTERACTION [None]
  - DRUG TOXICITY [None]
  - FALL [None]
  - HALLUCINATION [None]
  - HEAD INJURY [None]
  - LIMB INJURY [None]
